FAERS Safety Report 6832501-0 (Version None)
Quarter: 2010Q3

REPORT INFORMATION
  Report Type: 
  Country: None (occurrence: None)
  Receive Date: 20100712
  Receipt Date: 20070314
  Transmission Date: 20110219
  Serious: No
  Sender: FDA-Public Use
  Company Number: US-PFIZER INC-2007021071

PATIENT
  Sex: Female
  Weight: 56.25 kg

DRUGS (6)
  1. CHANTIX [Suspect]
     Indication: SMOKING CESSATION THERAPY
     Route: 048
     Dates: start: 20070305
  2. DETROL [Concomitant]
  3. ZYRTEC [Concomitant]
  4. MULTI-VITAMINS [Concomitant]
  5. LOVAZA [Concomitant]
  6. CHONDROITIN/GLUCOSAMINE [Concomitant]

REACTIONS (1)
  - NAUSEA [None]
